FAERS Safety Report 5217677-3 (Version None)
Quarter: 2007Q1

REPORT INFORMATION
  Report Type: 
  Country: None (occurrence: None)
  Receive Date: 20061130
  Receipt Date: 20060424
  Transmission Date: 20070707
  Serious: Yes (Hospitalization)
  Sender: FDA-Public Use
  Company Number: US200602001786

PATIENT
  Sex: Male
  Weight: 104.3 kg

DRUGS (3)
  1. ZYPREXA [Suspect]
     Dates: start: 19990101, end: 20010101
  2. DIVALPROEX SODIUM [Concomitant]
  3. MOBAN [Concomitant]

REACTIONS (1)
  - DIABETES MELLITUS [None]
